FAERS Safety Report 4669521-0 (Version None)
Quarter: 2005Q2

REPORT INFORMATION
  Report Type: 
  Country: None (occurrence: None)
  Receive Date: 20050523
  Receipt Date: 20050512
  Transmission Date: 20051028
  Serious: Yes (Hospitalization)
  Sender: FDA-Public Use
  Company Number: SD-ROCHE-404610

PATIENT
  Age: 39 Year
  Sex: Male
  Weight: 78 kg

DRUGS (1)
  1. PYRIMETHAMINE/SULFADOXINE [Suspect]
     Route: 048
     Dates: start: 20040125

REACTIONS (1)
  - EXTRAPYRAMIDAL DISORDER [None]
